FAERS Safety Report 21033682 (Version 1)
Quarter: 2022Q3

REPORT INFORMATION
  Report Type: Spontaneous
  Country: FR (occurrence: FR)
  Receive Date: 20220701
  Receipt Date: 20220701
  Transmission Date: 20221027
  Serious: Yes (Hospitalization)
  Sender: FDA-Public Use
  Company Number: None

PATIENT
  Age: 77 Year
  Sex: Female
  Weight: 99 kg

DRUGS (4)
  1. ACYCLOVIR [Suspect]
     Active Substance: ACYCLOVIR
     Indication: Meningitis herpes
     Dosage: 1400 MILLIGRAM, QD (700 MG EVERY 8 HOURS)
     Route: 041
     Dates: start: 20220418, end: 20220505
  2. ACYCLOVIR [Suspect]
     Active Substance: ACYCLOVIR
     Dosage: 1 GRAM, QD (500 MG EVERY 12 HOURS)
     Route: 041
     Dates: start: 20220418, end: 20220418
  3. ACYCLOVIR [Suspect]
     Active Substance: ACYCLOVIR
     Dosage: 3 GRAM, QD (1G*3/DAY )
     Route: 041
     Dates: start: 20220415, end: 20220418
  4. NICARDIPINE HYDROCHLORIDE [Concomitant]
     Active Substance: NICARDIPINE HYDROCHLORIDE
     Indication: Product used for unknown indication
     Dosage: 100 MILLIGRAM, QD (50 MG MORNING AND EVENING
     Route: 048

REACTIONS (2)
  - Pyrexia [Recovered/Resolved]
  - Acute kidney injury [Recovered/Resolved]

NARRATIVE: CASE EVENT DATE: 20220415
